FAERS Safety Report 16038845 (Version 1)
Quarter: 2019Q1

REPORT INFORMATION
  Report Type: Spontaneous
  Country: US (occurrence: US)
  Receive Date: 20190306
  Receipt Date: 20190306
  Transmission Date: 20190418
  Serious: Yes (Other)
  Sender: FDA-Public Use
  Company Number: US-SUN PHARMACEUTICAL INDUSTRIES LTD-2019R1-200919

PATIENT
  Age: 1 Week

DRUGS (2)
  1. DOXYCYCLINE. [Suspect]
     Active Substance: DOXYCYCLINE
     Indication: SCLEROTHERAPY
  2. DOXYCYCLINE. [Suspect]
     Active Substance: DOXYCYCLINE
     Indication: LYMPHANGIOMA
     Dosage: SCLEROTHERAPY WITH HIGH-DOSE DOXYCYCLINE
     Route: 065

REACTIONS (1)
  - Methaemoglobinaemia [Recovering/Resolving]
